FAERS Safety Report 20641603 (Version 1)
Quarter: 2022Q1

REPORT INFORMATION
  Report Type: Spontaneous
  Country: CZ (occurrence: CZ)
  Receive Date: 20220328
  Receipt Date: 20220328
  Transmission Date: 20220423
  Serious: Yes (Life-Threatening, Hospitalization, Other)
  Sender: FDA-Public Use
  Company Number: CZ-GLAXOSMITHKLINE-CZ2022EME053175

PATIENT
  Age: 31 Year
  Sex: Female

DRUGS (8)
  1. LAMOTRIGINE [Suspect]
     Active Substance: LAMOTRIGINE
     Indication: Product used for unknown indication
     Dosage: UNK
     Dates: start: 2021
  2. WARFARIN [Interacting]
     Active Substance: WARFARIN
     Indication: Pulmonary embolism
     Dosage: 10 MG, 1D
     Dates: start: 20210408
  3. WARFARIN [Interacting]
     Active Substance: WARFARIN
     Dosage: 10 MG, 1D
     Dates: start: 20210410
  4. WARFARIN [Interacting]
     Active Substance: WARFARIN
     Dosage: 5 MG, 1D  THE NEXT DAY
     Dates: start: 20210417
  5. FLUOXETINE [Interacting]
     Active Substance: FLUOXETINE HYDROCHLORIDE
     Indication: Anxiety
     Dosage: 20 MG, 1D
     Dates: start: 20210410
  6. VENLAFAXINE [Suspect]
     Active Substance: VENLAFAXINE HYDROCHLORIDE
     Indication: Product used for unknown indication
     Dosage: UNK
     Dates: start: 2021
  7. PANTOPRAZOLE [Concomitant]
     Active Substance: PANTOPRAZOLE
     Indication: Product used for unknown indication
     Dosage: 40 MG, 1D
     Dates: start: 20210408
  8. PANTOPRAZOLE [Concomitant]
     Active Substance: PANTOPRAZOLE
     Dosage: 40 MG, 1D
     Dates: start: 20210410

REACTIONS (6)
  - Suicide attempt [Unknown]
  - Pulmonary embolism [Unknown]
  - Drug interaction [Unknown]
  - Anxiety [Unknown]
  - Anorexia nervosa [Unknown]
  - International normalised ratio increased [Unknown]
